FAERS Safety Report 9793013 (Version 2)
Quarter: 2014Q1

REPORT INFORMATION
  Report Type: Spontaneous
  Country: US (occurrence: US)
  Receive Date: 20140102
  Receipt Date: 20140121
  Transmission Date: 20141002
  Serious: Yes (Hospitalization)
  Sender: FDA-Public Use
  Company Number: US-PFIZER INC-2013372538

PATIENT
  Age: 54 Year
  Sex: Female
  Weight: 68 kg

DRUGS (11)
  1. PROTONIX [Suspect]
     Indication: GASTROOESOPHAGEAL REFLUX DISEASE
     Dosage: 40 MG, 1X/DAY
     Route: 048
  2. CELEXA [Concomitant]
     Indication: DEPRESSION
     Dosage: 40 MG, 1X/DAY
  3. TOPAMAX [Concomitant]
     Indication: MIGRAINE
     Dosage: 50 MG, 2X/DAY
  4. IMITREX [Concomitant]
     Indication: MIGRAINE
     Dosage: UNK
  5. ACETAMINOPHEN W/OXYCODONE [Concomitant]
     Indication: PAIN
     Dosage: 7.5/325 MG, AS NEEDED
  6. TRAMADOL [Concomitant]
     Indication: PAIN
     Dosage: 50 MG, AS NEEDED
  7. SPIRIVA [Concomitant]
     Dosage: UNK, 1X/DAY
  8. ALBUTEROL [Concomitant]
     Dosage: UNK
  9. VENTOLIN HFA [Concomitant]
     Dosage: UNK
  10. KLONOPIN [Concomitant]
     Dosage: 2 MG, 2X/DAY
  11. SERAX [Concomitant]
     Indication: ANXIETY
     Dosage: 15 MG, 2X/DAY
     Dates: end: 201311

REACTIONS (5)
  - Pulmonary embolism [Not Recovered/Not Resolved]
  - Bronchitis [Recovered/Resolved]
  - Malaise [Not Recovered/Not Resolved]
  - Gastrooesophageal reflux disease [Not Recovered/Not Resolved]
  - Inappropriate schedule of drug administration [Unknown]
